FAERS Safety Report 25493656 (Version 1)
Quarter: 2025Q2

REPORT INFORMATION
  Report Type: Spontaneous
  Country: CH (occurrence: CH)
  Receive Date: 20250630
  Receipt Date: 20250630
  Transmission Date: 20250717
  Serious: Yes (Other)
  Sender: RANBAXY
  Company Number: CH-SUN PHARMACEUTICAL INDUSTRIES LTD-2025R1-510919

PATIENT
  Age: 6 Decade

DRUGS (1)
  1. CAPECITABINE [Suspect]
     Active Substance: CAPECITABINE
     Indication: Chemotherapy
     Dosage: 3500 MILLIGRAM, BID PER DAY
     Route: 048

REACTIONS (1)
  - Gastrointestinal toxicity [Recovering/Resolving]
